FAERS Safety Report 6213670-2 (Version None)
Quarter: 2009Q2

REPORT INFORMATION
  Report Type: 
  Country: None (occurrence: None)
  Receive Date: 20090601
  Receipt Date: 20090518
  Transmission Date: 20091009
  Serious: Yes (Other)
  Sender: FDA-Public Use
  Company Number: URSO-2009-062

PATIENT
  Age: 73 Year
  Sex: Male

DRUGS (5)
  1. URSO 250 [Suspect]
     Dosage: ORAL
     Route: 048
     Dates: start: 19990101, end: 20080501
  2. FAMOTIDINE [Concomitant]
  3. SELBES  (TEPRENINE [Concomitant]
  4. AMLODINE  (AMLODIPINE BESILATE) [Concomitant]
  5. MAGLAX  (MAGNESIUM  OXIDE) [Concomitant]

REACTIONS (1)
  - BEZOAR [None]
